FAERS Safety Report 4354678-1 (Version None)
Quarter: 2004Q2

REPORT INFORMATION
  Report Type: 
  Country: None (occurrence: None)
  Receive Date: 20040507
  Receipt Date: 20040427
  Transmission Date: 20050107
  Serious: Yes (Other)
  Sender: FDA-Public Use
  Company Number: PHRM2004FR01646

PATIENT
  Sex: Female

DRUGS (3)
  1. GLEEVEC [Suspect]
     Dosage: 200 MG DAILY
     Route: 048
     Dates: start: 20010901
  2. CRYOTHERAPY [Concomitant]
     Indication: HYPERKERATOSIS
     Dates: start: 20040420, end: 20040420
  3. ANTIDEPRESSANTS [Concomitant]

REACTIONS (13)
  - DELUSION [None]
  - FALL [None]
  - FEELING COLD [None]
  - HALLUCINATION [None]
  - HAND FRACTURE [None]
  - HEADACHE [None]
  - HYPERKERATOSIS [None]
  - HYPOTENSION [None]
  - PYREXIA [None]
  - SKIN LESION [None]
  - SYNCOPE [None]
  - TREMOR [None]
  - VOMITING [None]
